FAERS Safety Report 16534154 (Version 1)
Quarter: 2019Q3

REPORT INFORMATION
  Report Type: Spontaneous
  Country: GB (occurrence: GB)
  Receive Date: 20190705
  Receipt Date: 20190705
  Transmission Date: 20191004
  Serious: Yes (Other)
  Sender: FDA-Public Use
  Company Number: GB-TEVA-2019-GB-1071167

PATIENT
  Age: 28 Year
  Sex: Female
  Weight: 124 kg

DRUGS (8)
  1. TRIMETHOPRIM. [Concomitant]
     Active Substance: TRIMETHOPRIM
     Dates: start: 20190306, end: 20190309
  2. COCODAMOL [Suspect]
     Active Substance: ACETAMINOPHEN\CODEINE PHOSPHATE
     Dosage: 8MG/500MG
     Dates: start: 20190426
  3. ADCAL (CARBAZOCHROME) [Interacting]
     Active Substance: CARBAZOCHROME
     Dosage: DURING PREGNANCY
     Dates: start: 20150714, end: 20190320
  4. PHENOXYMETHYLPENICILLIN [Interacting]
     Active Substance: PENICILLIN V
     Dates: start: 20190320, end: 20190330
  5. LANSOPRAZOLE. [Concomitant]
     Active Substance: LANSOPRAZOLE
     Dates: start: 20190322, end: 20190419
  6. PARACETAMOL [Interacting]
     Active Substance: ACETAMINOPHEN
     Dosage: TAKE ONE TO TWO UPTO 4 TIMES DAILY
     Route: 065
     Dates: start: 20190322, end: 20190324
  7. CERELLE [Concomitant]
     Active Substance: DESOGESTREL
     Dates: start: 20190123, end: 20190425
  8. SERTRALINE [Concomitant]
     Active Substance: SERTRALINE HYDROCHLORIDE
     Dates: start: 20190123, end: 20190425

REACTIONS (3)
  - Drug interaction [Unknown]
  - Rash macular [Unknown]
  - Burning sensation [Unknown]

NARRATIVE: CASE EVENT DATE: 20190523
